FAERS Safety Report 7509420-X (Version None)
Quarter: 2011Q2

REPORT INFORMATION
  Report Type: 
  Country: None (occurrence: None)
  Receive Date: 20110527
  Receipt Date: 20101221
  Transmission Date: 20111010
  Serious: Yes (Other)
  Sender: FDA-Public Use
  Company Number: PHHY2010US92193

PATIENT
  Sex: Female

DRUGS (1)
  1. METHADONE HCL [Suspect]
     Indication: DRUG DEPENDENCE
     Dosage: UNK

REACTIONS (25)
  - INVESTIGATION ABNORMAL [None]
  - HORMONE LEVEL ABNORMAL [None]
  - EAR, NOSE AND THROAT EXAMINATION ABNORMAL [None]
  - PYREXIA [None]
  - TOOTH DISORDER [None]
  - NEUROLOGICAL SYMPTOM [None]
  - SKIN DISORDER [None]
  - DRUG EXPOSURE DURING PREGNANCY [None]
  - GASTROINTESTINAL DISORDER [None]
  - SOMATOFORM DISORDER [None]
  - DRUG ABUSE [None]
  - LYMPHADENOPATHY [None]
  - MUSCULOSKELETAL DISORDER [None]
  - CARDIOVASCULAR DISORDER [None]
  - MENTAL DISORDER [None]
  - SEXUALLY TRANSMITTED DISEASE [None]
  - UROGENITAL DISORDER [None]
  - POST PROCEDURAL COMPLICATION [None]
  - SLEEP DISORDER [None]
  - RESPIRATORY DISORDER [None]
  - APPETITE DISORDER [None]
  - LABOUR COMPLICATION [None]
  - INFECTION [None]
  - EYE DISORDER [None]
  - NEUROMYOPATHY [None]
